FAERS Safety Report 10973883 (Version 2)
Quarter: 2015Q1

REPORT INFORMATION
  Report Type: Spontaneous
  Country: US (occurrence: None)
  Receive Date: 20150226
  Receipt Date: 20150226
  Transmission Date: 20150721
  Serious: No
  Sender: FDA-Public Use
  Company Number: TAP2009Q00327

PATIENT
  Age: 67 Year
  Sex: Male
  Weight: 189 kg

DRUGS (8)
  1. ULORIC [Suspect]
     Active Substance: FEBUXOSTAT
     Indication: GOUT
     Route: 048
     Dates: start: 20090301, end: 20090714
  2. VITAMIN D (ERGOCALCIFEROL) [Concomitant]
     Active Substance: ERGOCALCIFEROL
  3. COLCHICINE. [Concomitant]
     Active Substance: COLCHICINE
  4. SODIUM BICARBONATE. [Concomitant]
     Active Substance: SODIUM BICARBONATE
  5. NEXIUM [Concomitant]
     Active Substance: ESOMEPRAZOLE MAGNESIUM
  6. ATENOLOL. [Concomitant]
     Active Substance: ATENOLOL
  7. LASIX [Concomitant]
     Active Substance: FUROSEMIDE
  8. NORVASC [Concomitant]
     Active Substance: AMLODIPINE BESYLATE

REACTIONS (7)
  - Paraesthesia [None]
  - Arthralgia [None]
  - Joint stiffness [None]
  - Insomnia [None]
  - Pruritus [None]
  - Rash [None]
  - Hyperaesthesia [None]

NARRATIVE: CASE EVENT DATE: 20090322
